FAERS Safety Report 21179971 (Version 2)
Quarter: 2022Q3

REPORT INFORMATION
  Report Type: Spontaneous
  Country: FR (occurrence: FR)
  Receive Date: 20220805
  Receipt Date: 20220912
  Transmission Date: 20221026
  Serious: Yes (Hospitalization, Other)
  Sender: FDA-Public Use
  Company Number: None

PATIENT
  Age: 90 Year
  Sex: Male

DRUGS (10)
  1. OFIRMEV [Suspect]
     Active Substance: ACETAMINOPHEN
     Indication: Analgesic therapy
     Dosage: 1 DOSAGE FORM, PRN
     Route: 042
     Dates: start: 20220317, end: 20220328
  2. HERBALS\SAW PALMETTO [Suspect]
     Active Substance: HERBALS\SAW PALMETTO
     Indication: Benign prostatic hyperplasia
     Dosage: 2 DOSAGE FORM, TIME 1 DAY
     Route: 048
     Dates: start: 20220317, end: 20220330
  3. SOTROVIMAB [Suspect]
     Active Substance: SOTROVIMAB
     Indication: COVID-19
     Dosage: 500 MILLIGRAM IN 1 TOTAL
     Route: 042
     Dates: start: 20220324, end: 20220324
  4. PERINDOPRIL [Concomitant]
     Active Substance: PERINDOPRIL
     Indication: Product used for unknown indication
     Dosage: UNK
     Route: 065
  5. FUROSEMIDE [Concomitant]
     Active Substance: FUROSEMIDE
     Indication: Product used for unknown indication
     Dosage: UNK
     Route: 065
  6. HUMALOG [Concomitant]
     Active Substance: INSULIN LISPRO
     Indication: Product used for unknown indication
     Dosage: UNK
     Route: 065
  7. CALCIPARINE [Concomitant]
     Active Substance: HEPARIN CALCIUM
     Indication: Product used for unknown indication
     Dosage: UNK
     Route: 065
  8. KARDEGIC [Concomitant]
     Active Substance: ASPIRIN DL-LYSINE
     Indication: Product used for unknown indication
     Dosage: UNK
     Route: 065
  9. REPAGLINIDE [Concomitant]
     Active Substance: REPAGLINIDE
     Indication: Product used for unknown indication
     Dosage: UNK
     Route: 065
  10. FINASTERIDE [Concomitant]
     Active Substance: FINASTERIDE
     Indication: Product used for unknown indication
     Dosage: UNK
     Route: 065

REACTIONS (3)
  - Hepatic cytolysis [Recovered/Resolved]
  - Cholestasis [Recovering/Resolving]
  - Condition aggravated [Recovering/Resolving]

NARRATIVE: CASE EVENT DATE: 20220324
